FAERS Safety Report 25708110 (Version 1)
Quarter: 2025Q3

REPORT INFORMATION
  Report Type: Spontaneous
  Country: US (occurrence: US)
  Receive Date: 20250820
  Receipt Date: 20250820
  Transmission Date: 20251021
  Serious: No
  Sender: SANOFI AVENTIS
  Company Number: US-SA-2025SA245523

PATIENT
  Age: 6 Year
  Sex: Male
  Weight: 15.873 kg

DRUGS (2)
  1. DUPIXENT [Suspect]
     Active Substance: DUPILUMAB
     Indication: Dermatitis atopic
     Dosage: 300 MG, Q4W
     Route: 058
  2. VTAMA [Concomitant]
     Active Substance: TAPINAROF

REACTIONS (2)
  - Dermatitis atopic [Unknown]
  - Condition aggravated [Unknown]
